FAERS Safety Report 7589158-3 (Version None)
Quarter: 2011Q3

REPORT INFORMATION
  Report Type: 
  Country: None (occurrence: None)
  Receive Date: 20110705
  Receipt Date: 20110606
  Transmission Date: 20111222
  Serious: No
  Sender: FDA-Public Use
  Company Number: US-BAYER-2011-049249

PATIENT
  Age: 82 Year
  Sex: Female
  Weight: 77 kg

DRUGS (3)
  1. LIPITOR [Concomitant]
     Dosage: UNK
     Route: 048
  2. SYNTHROID [Concomitant]
     Dosage: UNK
     Route: 048
  3. ALEVE (CAPLET) [Suspect]
     Indication: BACK PAIN
     Dosage: 1 DF, BID
     Route: 048
     Dates: start: 20110604

REACTIONS (1)
  - CONSTIPATION [None]
